FAERS Safety Report 14653178 (Version 1)
Quarter: 2018Q1

REPORT INFORMATION
  Report Type: Spontaneous
  Country: GB (occurrence: GB)
  Receive Date: 20180319
  Receipt Date: 20180319
  Transmission Date: 20180509
  Serious: Yes (Other)
  Sender: FDA-Public Use
  Company Number: GB-VELOXIS PHARMACEUTICALS-2044003

PATIENT
  Age: 24 Month
  Sex: Female
  Weight: 10 kg

DRUGS (10)
  1. PIMECROLIMUS [Concomitant]
     Active Substance: PIMECROLIMUS
     Dates: start: 20170915
  2. DIPROBASE [Concomitant]
     Active Substance: CHLOROCRESOL
     Dates: start: 20170605
  3. HYDROCORTISONE ACETATE. [Concomitant]
     Active Substance: HYDROCORTISONE ACETATE
     Dates: start: 20170829
  4. ENVARSUS XR [Suspect]
     Active Substance: TACROLIMUS
     Indication: PRODUCT USED FOR UNKNOWN INDICATION
     Dates: start: 20180111
  5. BONJELA [Concomitant]
     Active Substance: CETALKONIUM CHLORIDE\CHOLINE SALICYLATE\MENTHOL
     Dates: start: 20171127, end: 20171128
  6. BENZYDAMINE HYDROCHLORIDE [Concomitant]
     Active Substance: BENZYDAMINE HYDROCHLORIDE
     Dates: start: 20171127, end: 20171202
  7. FLUCLOXACILLIN [Concomitant]
     Active Substance: FLUCLOXACILLIN
     Dates: start: 20180103, end: 20180110
  8. PREDNISOLONE. [Concomitant]
     Active Substance: PREDNISOLONE
     Dates: start: 20171201, end: 20171206
  9. PROTOPIC [Concomitant]
     Active Substance: TACROLIMUS
     Dates: start: 20180125, end: 20180205
  10. CLARITHROMYCIN. [Concomitant]
     Active Substance: CLARITHROMYCIN
     Dates: start: 20171201, end: 20171208

REACTIONS (2)
  - Intentional product use issue [None]
  - Rash erythematous [Recovered/Resolved]

NARRATIVE: CASE EVENT DATE: 20180215
